FAERS Safety Report 16619865 (Version 1)
Quarter: 2019Q3

REPORT INFORMATION
  Report Type: Report from Study
  Country: RU (occurrence: RU)
  Receive Date: 20190723
  Receipt Date: 20190723
  Transmission Date: 20191004
  Serious: Yes (Other)
  Sender: FDA-Public Use
  Company Number: RU-ASTRAZENECA-2019SF04199

PATIENT
  Age: 60 Year
  Sex: Female
  Weight: 75 kg

DRUGS (8)
  1. NOLIPREL [Concomitant]
  2. CALCIUM [Concomitant]
     Active Substance: CALCIUM
  3. METFORMIN [Concomitant]
     Active Substance: METFORMIN HYDROCHLORIDE
  4. FORXIGA [Suspect]
     Active Substance: DAPAGLIFLOZIN
     Indication: TYPE 2 DIABETES MELLITUS
     Route: 048
     Dates: start: 201902
  5. CONCOR [Concomitant]
     Active Substance: BISOPROLOL FUMARATE
  6. L-THYROXIN [Concomitant]
     Active Substance: LEVOTHYROXINE SODIUM
  7. RIBOXIN [Concomitant]
     Active Substance: INOSINE
  8. MAGNII [Concomitant]

REACTIONS (2)
  - Polyuria [Recovered/Resolved]
  - Blood pressure decreased [Recovered/Resolved]

NARRATIVE: CASE EVENT DATE: 201902
